FAERS Safety Report 8238889-0 (Version None)
Quarter: 2012Q1

REPORT INFORMATION
  Report Type: 
  Country: None (occurrence: None)
  Receive Date: 20120327
  Receipt Date: 20120312
  Transmission Date: 20120608
  Serious: Yes (Other)
  Sender: FDA-Public Use
  Company Number: MA-FRI-1000028627

PATIENT
  Age: 24 Year
  Sex: Male

DRUGS (5)
  1. CARBIMAZOLE [Suspect]
     Indication: HYPOTHYROIDISM
     Dosage: 30 MG
  2. PROPRANOLOL [Suspect]
     Dosage: 60 MG
  3. CARBIMAZOLE [Suspect]
     Dosage: 15 MG
  4. CARBIMAZOLE [Suspect]
     Indication: HYPERTHYROIDISM
     Dosage: 45 MG
  5. CARBIMAZOLE [Suspect]
     Indication: BASEDOW'S DISEASE

REACTIONS (1)
  - IRON DEFICIENCY ANAEMIA [None]
